FAERS Safety Report 12037281 (Version 1)
Quarter: 2016Q1

REPORT INFORMATION
  Report Type: Spontaneous
  Country: IN (occurrence: IN)
  Receive Date: 20160208
  Receipt Date: 20160208
  Transmission Date: 20160526
  Serious: Yes (Other)
  Sender: FDA-Public Use
  Company Number: IN-PAR PHARMACEUTICAL COMPANIES-2016SCPR015153

PATIENT

DRUGS (5)
  1. EPHEDRINE. [Concomitant]
     Active Substance: EPHEDRINE
     Indication: BLOOD PRESSURE MANAGEMENT
     Dosage: UNK UNK, UNKNOWN
  2. ANAESTHETICS, LOCAL [Concomitant]
     Active Substance: UNSPECIFIED INGREDIENT
     Indication: LOCAL ANAESTHESIA
     Dosage: UNK UNK, UNKNOWN
     Route: 061
  3. DEXMEDETOMIDINE HYDROCHLORIDE. [Suspect]
     Active Substance: DEXMEDETOMIDINE HYDROCHLORIDE
     Indication: SEDATIVE THERAPY
     Dosage: 1 MCG/KG, BOLUS, OVER 10 MIN INFUSION
  4. RINGER LACTAT                      /03353501/ [Concomitant]
     Indication: BLOOD PRESSURE MANAGEMENT
     Dosage: 4 ML/KG, /HR
  5. GLYCOPYRROLATE                     /00196202/ [Concomitant]
     Active Substance: GLYCOPYRROLATE
     Indication: BLOOD PRESSURE MANAGEMENT
     Dosage: 0.2 MG, UNKNOWN

REACTIONS (2)
  - Vascular resistance systemic increased [Unknown]
  - Cerebral vasoconstriction [Unknown]
